FAERS Safety Report 8408506-5 (Version None)
Quarter: 2012Q2

REPORT INFORMATION
  Report Type: 
  Country: None (occurrence: None)
  Receive Date: 20120604
  Receipt Date: 20120522
  Transmission Date: 20120825
  Serious: No
  Sender: FDA-Public Use
  Company Number: US-BAYER-2012-053202

PATIENT
  Age: 39 Year
  Sex: Male
  Weight: 89 kg

DRUGS (1)
  1. ALEVE (CAPLET) [Suspect]
     Indication: HEADACHE
     Dosage: 2 U, PRN
     Route: 048
     Dates: start: 20120401, end: 20120522

REACTIONS (3)
  - THROAT IRRITATION [None]
  - PRURITUS [None]
  - EAR PRURITUS [None]
